FAERS Safety Report 11058246 (Version 1)
Quarter: 2015Q2

REPORT INFORMATION
  Report Type: Spontaneous
  Country: US (occurrence: None)
  Receive Date: 20150420
  Receipt Date: 20150420
  Transmission Date: 20150821
  Serious: No
  Sender: FDA-Public Use
  Company Number: AEGR001250

PATIENT
  Age: 46 Year
  Sex: Male

DRUGS (1)
  1. JUXTAPID [Suspect]
     Active Substance: LOMITAPIDE MESYLATE
     Indication: PRODUCT USED FOR UNKNOWN INDICATION
     Route: 048
     Dates: start: 201411

REACTIONS (4)
  - Chest pain [None]
  - Gastrooesophageal reflux disease [None]
  - Tension headache [None]
  - Product used for unknown indication [None]

NARRATIVE: CASE EVENT DATE: 201411
